FAERS Safety Report 10529120 (Version 1)
Quarter: 2014Q4

REPORT INFORMATION
  Report Type: Spontaneous
  Country: GB (occurrence: GB)
  Receive Date: 20141020
  Receipt Date: 20141020
  Transmission Date: 20150528
  Serious: Yes (Other)
  Sender: FDA-Public Use
  Company Number: GB-ABBVIE-14P-167-1297740-00

PATIENT
  Sex: Female

DRUGS (1)
  1. EPILIM [Suspect]
     Active Substance: VALPROATE SODIUM
     Indication: EPILEPSY
     Route: 048

REACTIONS (2)
  - Generalised tonic-clonic seizure [Unknown]
  - Incorrect product storage [Unknown]
